FAERS Safety Report 13226057 (Version 1)
Quarter: 2017Q1

REPORT INFORMATION
  Report Type: Report from Study
  Country: US (occurrence: US)
  Receive Date: 20170213
  Receipt Date: 20170213
  Transmission Date: 20170428
  Serious: Yes (Other)
  Sender: FDA-Public Use
  Company Number: US-ALEXION PHARMACEUTICALS INC.-A201701139

PATIENT
  Sex: Female

DRUGS (2)
  1. STRENSIQ [Suspect]
     Active Substance: ASFOTASE ALFA
     Dosage: UNK
     Route: 058
  2. STRENSIQ [Suspect]
     Active Substance: ASFOTASE ALFA
     Indication: HYPOPHOSPHATASIA
     Dosage: UNK
     Route: 058

REACTIONS (15)
  - Fatigue [Unknown]
  - Bedridden [Unknown]
  - Walking aid user [Unknown]
  - Abdominal hernia [Unknown]
  - Fluid retention [Unknown]
  - Dysstasia [Unknown]
  - Abasia [Unknown]
  - Inflammation [Unknown]
  - Neck pain [Unknown]
  - Oedema [Unknown]
  - Asthenia [Unknown]
  - Weight increased [Unknown]
  - Diplopia [Unknown]
  - Carpal tunnel syndrome [Unknown]
  - Back pain [Unknown]

NARRATIVE: CASE EVENT DATE: 20170202
